FAERS Safety Report 18468431 (Version 1)
Quarter: 2020Q4

REPORT INFORMATION
  Report Type: Spontaneous
  Country: GB (occurrence: GB)
  Receive Date: 20201105
  Receipt Date: 20201105
  Transmission Date: 20210114
  Serious: Yes (Other)
  Sender: FDA-Public Use
  Company Number: GB-MSNLABS-2020MSNLIT00398

PATIENT
  Age: 90 Year
  Sex: Female

DRUGS (3)
  1. NIFEDIPINE. [Suspect]
     Active Substance: NIFEDIPINE
     Indication: HYPERTENSION
     Route: 065
  2. CLOPIDOGREL [Suspect]
     Active Substance: CLOPIDOGREL BISULFATE
     Indication: TRANSIENT ISCHAEMIC ATTACK
     Route: 065
  3. ATORVASTATIN TABLETS 80MG [Suspect]
     Active Substance: ATORVASTATIN
     Indication: TRANSIENT ISCHAEMIC ATTACK
     Dosage: 40 MG ONCE NIGHTLY
     Route: 065

REACTIONS (2)
  - Drug interaction [Recovered/Resolved]
  - Drug-induced liver injury [Recovered/Resolved]
